FAERS Safety Report 12961613 (Version 5)
Quarter: 2017Q1

REPORT INFORMATION
  Report Type: Spontaneous
  Country: DK (occurrence: DK)
  Receive Date: 20161121
  Receipt Date: 20170109
  Transmission Date: 20170428
  Serious: Yes (Death, Hospitalization, Other)
  Sender: FDA-Public Use
  Company Number: DK-TEVA-712297ISR

PATIENT
  Age: 54 Year
  Sex: Male

DRUGS (2)
  1. SERTRALINE [Suspect]
     Active Substance: SERTRALINE HYDROCHLORIDE
     Indication: COMPLETED SUICIDE
     Dosage: 5000MG, SINGLE DOSE
     Route: 048
  2. VENLAFAXINE [Suspect]
     Active Substance: VENLAFAXINE HYDROCHLORIDE
     Indication: COMPLETED SUICIDE
     Dosage: 1500MG, SINGLE DOSE
     Route: 048

REACTIONS (15)
  - Muscle rigidity [Unknown]
  - Flushing [Unknown]
  - Heart rate increased [Unknown]
  - Tremor [Unknown]
  - Seizure [Unknown]
  - Unresponsive to stimuli [Unknown]
  - Cardiac arrest [Fatal]
  - Agitation [Unknown]
  - Completed suicide [Fatal]
  - Intentional overdose [Fatal]
  - Blood pressure decreased [Unknown]
  - Myoclonus [Unknown]
  - Serotonin syndrome [Fatal]
  - Vomiting [Unknown]
  - Bradycardia [Unknown]
